FAERS Safety Report 8448846-7 (Version None)
Quarter: 2012Q2

REPORT INFORMATION
  Report Type: 
  Country: None (occurrence: None)
  Receive Date: 20120619
  Receipt Date: 20120615
  Transmission Date: 20120825
  Serious: Yes (Hospitalization)
  Sender: FDA-Public Use
  Company Number: US-PFIZER INC-2012145169

PATIENT
  Sex: Female
  Weight: 79.365 kg

DRUGS (3)
  1. PREMARIN [Suspect]
     Indication: MENOPAUSE
     Dosage: 0.3 MG, DAILY
  2. PROVERA [Suspect]
     Indication: MENOPAUSE
     Dosage: 2.5 MG, DAILY
  3. TEVETEN [Concomitant]
     Indication: BLOOD PRESSURE ABNORMAL
     Dosage: 300 MG, DAILY

REACTIONS (2)
  - PAIN IN EXTREMITY [None]
  - IMPAIRED DRIVING ABILITY [None]
